FAERS Safety Report 6959031-X (Version None)
Quarter: 2010Q3

REPORT INFORMATION
  Report Type: 
  Country: None (occurrence: None)
  Receive Date: 20100831
  Receipt Date: 20100826
  Transmission Date: 20110219
  Serious: Yes (Hospitalization)
  Sender: FDA-Public Use
  Company Number: US-ABBOTT-10P-163-0666184-00

PATIENT
  Sex: Male

DRUGS (2)
  1. HUMIRA [Suspect]
     Indication: PITYRIASIS RUBRA PILARIS
  2. HUMIRA [Suspect]
     Dosage: DOSAGE INCREASED TO WEEKLY

REACTIONS (2)
  - EOSINOPHILIA [None]
  - LYMPHATIC SYSTEM NEOPLASM [None]
